FAERS Safety Report 9899859 (Version 2)
Quarter: 2014Q3

REPORT INFORMATION
  Report Type: Spontaneous
  Country: US (occurrence: US)
  Receive Date: 20140214
  Receipt Date: 20140818
  Transmission Date: 20150326
  Serious: Yes (Life-Threatening, Hospitalization, Other)
  Sender: FDA-Public Use
  Company Number: US-009507513-1402USA007371

PATIENT
  Sex: Female

DRUGS (1)
  1. NUVARING [Suspect]
     Active Substance: ETHINYL ESTRADIOL\ETONOGESTREL
     Indication: MENORRHAGIA
     Route: 067

REACTIONS (11)
  - Menorrhagia [Unknown]
  - Pulmonary embolism [Unknown]
  - Hypertension [Unknown]
  - Off label use [Unknown]
  - Uterine dilation and curettage [Unknown]
  - Hysterectomy [Unknown]
  - Cholecystectomy [Unknown]
  - Depression [Unknown]
  - Deep vein thrombosis [Unknown]
  - Uterine leiomyoma [Unknown]
  - Anaemia [Unknown]

NARRATIVE: CASE EVENT DATE: 20121229
